FAERS Safety Report 18291397 (Version 1)
Quarter: 2020Q3

REPORT INFORMATION
  Report Type: Spontaneous
  Country: US (occurrence: US)
  Receive Date: 20200921
  Receipt Date: 20200921
  Transmission Date: 20201103
  Serious: Yes (Death, Other)
  Sender: FDA-Public Use
  Company Number: US-PFIZER INC-2019002112

PATIENT
  Age: 90 Year
  Sex: Male

DRUGS (3)
  1. LYRICA [Suspect]
     Active Substance: PREGABALIN
     Indication: DIABETIC NEUROPATHY
     Dosage: 300 MG, DAILY [1 BY MOUTH EVERY MORNING 1 AT LUNCH THEN 2 EVERY NIGHT]
     Route: 048
  2. LYRICA [Suspect]
     Active Substance: PREGABALIN
     Indication: TYPE 2 DIABETES MELLITUS
     Dosage: 450 MG, DAILY (2 PO Q AM, Q AFTERNOON AND 2 PO QHS 90 DAYS)
     Route: 048
  3. LYRICA [Suspect]
     Active Substance: PREGABALIN
     Indication: PAIN
     Dosage: 75 MG, AS NEEDED (1 PO Q AM, 1 AT LUNCH + THEN 2 QHS)

REACTIONS (1)
  - Death [Fatal]
